FAERS Safety Report 19780964 (Version 1)
Quarter: 2021Q3

REPORT INFORMATION
  Report Type: Spontaneous
  Country: US (occurrence: US)
  Receive Date: 20210902
  Receipt Date: 20210902
  Transmission Date: 20211014
  Serious: No
  Sender: FDA-Public Use
  Company Number: US-MYLANLABS-2021M1055084

PATIENT
  Age: 70 Year
  Sex: Female
  Weight: 83 kg

DRUGS (1)
  1. METHIMAZOLE TABLETS, USP [Suspect]
     Active Substance: METHIMAZOLE
     Indication: HYPOTHYROIDISM
     Dosage: UNK UNK, QD, DAILY

REACTIONS (10)
  - Heart rate increased [Unknown]
  - Headache [Unknown]
  - Wrong technique in product usage process [Unknown]
  - Dyspnoea [Unknown]
  - Irritability [Unknown]
  - Drug ineffective for unapproved indication [Unknown]
  - Dry eye [Unknown]
  - Illness [Unknown]
  - Tearfulness [Unknown]
  - Product substitution issue [Unknown]
